FAERS Safety Report 13949134 (Version 6)
Quarter: 2017Q4

REPORT INFORMATION
  Report Type: Report from Study
  Country: CA (occurrence: CA)
  Receive Date: 20170908
  Receipt Date: 20171220
  Transmission Date: 20180320
  Serious: Yes (Other)
  Sender: FDA-Public Use
  Company Number: CA-GLAXOSMITHKLINE-CA2017GSK134839

PATIENT
  Age: 36 Year
  Sex: Male

DRUGS (10)
  1. COSENTYX [Suspect]
     Active Substance: SECUKINUMAB
     Indication: PSORIATIC ARTHROPATHY
     Dosage: 300 MG, WE
     Route: 058
     Dates: start: 20170905
  2. COSENTYX [Suspect]
     Active Substance: SECUKINUMAB
     Dosage: 300 MG, Q2W
     Route: 058
     Dates: start: 201712
  3. METHOTREXATE. [Concomitant]
     Active Substance: METHOTREXATE
  4. ENBREL [Concomitant]
     Active Substance: ETANERCEPT
  5. IBUPROFEN. [Concomitant]
     Active Substance: IBUPROFEN
  6. HUMIRA [Concomitant]
     Active Substance: ADALIMUMAB
  7. CELEBREX [Concomitant]
     Active Substance: CELECOXIB
  8. DICLOFENAC SODIUM. [Suspect]
     Active Substance: DICLOFENAC SODIUM
     Indication: PRODUCT USED FOR UNKNOWN INDICATION
     Route: 065
  9. COSENTYX [Suspect]
     Active Substance: SECUKINUMAB
     Indication: PSORIASIS
     Dosage: 300 MG, QMO
     Route: 058
     Dates: start: 20171103
  10. NAPROXEN. [Concomitant]
     Active Substance: NAPROXEN

REACTIONS (9)
  - Skin fissures [Unknown]
  - Nasal dryness [Unknown]
  - Pain [Unknown]
  - Nasal discomfort [Unknown]
  - Psoriasis [Unknown]
  - Abscess limb [Recovering/Resolving]
  - Stress [Unknown]
  - Arthralgia [Unknown]
  - Pruritus [Unknown]

NARRATIVE: CASE EVENT DATE: 201708
